FAERS Safety Report 13651471 (Version 1)
Quarter: 2017Q2

REPORT INFORMATION
  Report Type: Spontaneous
  Country: US (occurrence: US)
  Receive Date: 20170614
  Receipt Date: 20170614
  Transmission Date: 20170830
  Serious: Yes (Hospitalization, Other)
  Sender: FDA-Public Use
  Company Number: US-PFIZER INC-2017253413

PATIENT
  Age: 37 Year
  Sex: Female
  Weight: 123.3 kg

DRUGS (3)
  1. LYRICA [Suspect]
     Active Substance: PREGABALIN
     Dosage: 100 MG, 2X/DAY
     Route: 048
     Dates: start: 2004, end: 2016
  2. LYRICA [Suspect]
     Active Substance: PREGABALIN
     Indication: NEUROPATHY PERIPHERAL
     Dosage: 75 MG, UNK
     Dates: start: 2002
  3. LYRICA [Suspect]
     Active Substance: PREGABALIN
     Dosage: 150 MG, UNK
     Dates: start: 2003

REACTIONS (15)
  - Influenza [Recovered/Resolved]
  - Cartilage injury [Unknown]
  - Ankle fracture [Recovered/Resolved]
  - Foot fracture [Unknown]
  - Blood glucose increased [Recovering/Resolving]
  - Balance disorder [Not Recovered/Not Resolved]
  - Hand fracture [Recovered/Resolved]
  - Fall [Recovered/Resolved]
  - Seizure [Unknown]
  - Wrist fracture [Recovering/Resolving]
  - Osteomyelitis [Unknown]
  - Tremor [Unknown]
  - Renal disorder [Recovering/Resolving]
  - Dyskinesia [Recovered/Resolved]
  - Stress [Unknown]

NARRATIVE: CASE EVENT DATE: 2003
